FAERS Safety Report 6732128-5 (Version None)
Quarter: 2010Q2

REPORT INFORMATION
  Report Type: 
  Country: None (occurrence: None)
  Receive Date: 20100519
  Receipt Date: 20100517
  Transmission Date: 20101027
  Serious: Yes (Other)
  Sender: FDA-Public Use
  Company Number: US-PERRIGO-09US004081

PATIENT
  Sex: Female
  Weight: 27.211 kg

DRUGS (1)
  1. TRIAMCINOLONE ACETONIDE RX 0.1% 3L6 [Suspect]
     Indication: ECZEMA
     Dosage: UNKNOWN MULTIPLE TIMES PER DAY BEYOND BID-TOPICAL OVER UNKNOWN AREA
     Route: 061
     Dates: start: 20090201

REACTIONS (13)
  - BREAST ENLARGEMENT [None]
  - CYSTITIS [None]
  - FEBRILE CONVULSION [None]
  - GROWTH RETARDATION [None]
  - INCORRECT DOSE ADMINISTERED [None]
  - OVERDOSE [None]
  - PSEUDOMONAS INFECTION [None]
  - STRABISMUS [None]
  - STREPTOCOCCAL INFECTION [None]
  - UPPER RESPIRATORY TRACT INFECTION [None]
  - VISUAL ACUITY REDUCED [None]
  - VOMITING [None]
  - WEIGHT INCREASED [None]
